FAERS Safety Report 5084661-2 (Version None)
Quarter: 2006Q3

REPORT INFORMATION
  Report Type: 
  Country: None (occurrence: None)
  Receive Date: 20060818
  Receipt Date: 20060818
  Transmission Date: 20061208
  Serious: Yes (Other)
  Sender: FDA-Public Use
  Company Number: None

PATIENT
  Sex: Female
  Weight: 46.7 kg

DRUGS (7)
  1. LAMICTAL [Suspect]
     Indication: MOOD ALTERED
  2. ABILIFY [Concomitant]
  3. COGENTIN [Concomitant]
  4. HALDOL [Concomitant]
  5. TRAZODONE HCL [Concomitant]
  6. LEVSIN [Concomitant]
  7. MIRALAX [Concomitant]

REACTIONS (3)
  - EOSINOPHILIA [None]
  - LIVER FUNCTION TEST ABNORMAL [None]
  - RASH [None]
